FAERS Safety Report 8326212 (Version 2)
Quarter: 2013Q2

REPORT INFORMATION
  Report Type: Spontaneous
  Country: US (occurrence: US)
  Receive Date: 20120106
  Receipt Date: 20130604
  Transmission Date: 20140414
  Serious: Yes (Hospitalization, Other)
  Sender: FDA-Public Use
  Company Number: US-AMGEN-USASP2012000327

PATIENT
  Age: 66 Year
  Sex: Female
  Weight: 108.8 kg

DRUGS (11)
  1. ENBREL [Suspect]
     Indication: PSORIATIC ARTHROPATHY
     Dosage: 50 MG, QWK
     Route: 065
  2. HUMIRA [Suspect]
     Indication: PSORIATIC ARTHROPATHY
     Dosage: 40 MG, Q2WK
     Route: 058
     Dates: start: 201108
  3. DEPAKOTE [Suspect]
     Indication: TEMPORAL LOBE EPILEPSY
     Dosage: 750 MG, UNK
     Route: 048
     Dates: start: 1996
  4. AZATHIOPRINE [Suspect]
     Indication: PSORIATIC ARTHROPATHY
     Dosage: UNK
     Dates: start: 2010
  5. FOLIC ACID [Concomitant]
     Dosage: UNK
  6. BUPROPION [Concomitant]
     Indication: DEPRESSION
     Dosage: UNK
  7. FLUOXETINE [Concomitant]
     Indication: DEPRESSION
     Dosage: UNK
  8. SYNTHROID [Concomitant]
     Indication: HYPOTHYROIDISM
     Dosage: UNK
  9. LIOTHYRONINE [Concomitant]
     Indication: HYPOTHYROIDISM
     Dosage: UNK
  10. ADVAIR [Concomitant]
     Indication: CHRONIC OBSTRUCTIVE PULMONARY DISEASE
     Dosage: UNK
  11. MELATONIN [Concomitant]
     Indication: SLEEP DISORDER
     Dosage: UNK

REACTIONS (23)
  - Renal cancer [Recovered/Resolved]
  - Hepatic steatosis [Unknown]
  - Hypertension [Unknown]
  - Loss of consciousness [Recovered/Resolved]
  - Fall [Recovered/Resolved]
  - Concussion [Recovered/Resolved]
  - Syncope [Recovered/Resolved]
  - Lower limb fracture [Recovered/Resolved]
  - VIth nerve paralysis [Unknown]
  - Essential tremor [Unknown]
  - Chronic obstructive pulmonary disease [Recovered/Resolved]
  - Asthma [Not Recovered/Not Resolved]
  - Convulsion [Unknown]
  - Cholecystitis infective [Recovered/Resolved]
  - Infective exacerbation of chronic obstructive airways disease [Not Recovered/Not Resolved]
  - Balance disorder [Not Recovered/Not Resolved]
  - Weight increased [Not Recovered/Not Resolved]
  - Walking aid user [Not Recovered/Not Resolved]
  - Muscular weakness [Not Recovered/Not Resolved]
  - Large intestine polyp [Recovered/Resolved]
  - Proctitis ulcerative [Recovered/Resolved]
  - Diarrhoea [Recovered/Resolved]
  - Injection site reaction [Not Recovered/Not Resolved]
